FAERS Safety Report 6987282-7 (Version None)
Quarter: 2010Q3

REPORT INFORMATION
  Report Type: 
  Country: None (occurrence: None)
  Receive Date: 20100825
  Receipt Date: 20100623
  Transmission Date: 20110219
  Serious: No
  Sender: FDA-Public Use
  Company Number: 201006010

PATIENT
  Age: 71 Year
  Sex: Female
  Weight: 64.8644 kg

DRUGS (1)
  1. XIAFLEX [Suspect]
     Indication: DUPUYTREN'S CONTRACTURE
     Dosage: INTRALESIONAL
     Route: 026
     Dates: start: 20100601, end: 20100601

REACTIONS (6)
  - ERYTHEMA [None]
  - LYMPH NODE PAIN [None]
  - LYMPHATIC DISORDER [None]
  - PRURITUS [None]
  - RASH [None]
  - URTICARIA [None]
